FAERS Safety Report 4809897-4 (Version None)
Quarter: 2005Q4

REPORT INFORMATION
  Report Type: 
  Country: None (occurrence: None)
  Receive Date: 20051026
  Receipt Date: 20051019
  Transmission Date: 20060501
  Serious: Yes (Hospitalization)
  Sender: FDA-Public Use
  Company Number: JP-JNJFOC-20051004314

PATIENT
  Age: 56 Year
  Sex: Male

DRUGS (6)
  1. RISPERDAL [Suspect]
     Route: 048
  2. RISPERDAL [Suspect]
     Route: 048
  3. RISPERDAL [Suspect]
     Indication: DRUG USE FOR UNKNOWN INDICATION
     Route: 048
  4. PROMETHAZINE HYDROCHLORIDE [Concomitant]
     Route: 048
  5. CHLORPROMAZINE HIBENZATE [Concomitant]
     Route: 048
  6. MAZATICOL HYDROCHLORIDE [Concomitant]
     Route: 048

REACTIONS (2)
  - HYPOKALAEMIA [None]
  - PANCYTOPENIA [None]
